FAERS Safety Report 8376287-X (Version None)
Quarter: 2012Q2

REPORT INFORMATION
  Report Type: 
  Country: None (occurrence: None)
  Receive Date: 20120517
  Receipt Date: 20120507
  Transmission Date: 20120825
  Serious: Yes (Life-Threatening, Hospitalization, Congenital Anomaly, Other)
  Sender: FDA-Public Use
  Company Number: AUR-APL-2012-02179

PATIENT
  Sex: Female
  Weight: 0.82 kg

DRUGS (3)
  1. BETAMETHASONE [Concomitant]
  2. FOLSAURE (FOLIC ACID) [Concomitant]
  3. SERTRALINE HYDROCHLORIDE [Suspect]
     Indication: DEPRESSION
     Dosage: 150 (MGLD) I UNTIL 16.8.11 100 MGLD, 150 MGLD UNTIL DELIVERY (100 MG,1 D) TRANSPLACENTAL
     Route: 064
     Dates: start: 20110331, end: 20110816

REACTIONS (14)
  - BRONCHOPULMONARY DYSPLASIA [None]
  - PATENT DUCTUS ARTERIOSUS [None]
  - CAESAREAN SECTION [None]
  - TWIN PREGNANCY [None]
  - BRADYCARDIA NEONATAL [None]
  - NEONATAL RESPIRATORY DISTRESS SYNDROME [None]
  - CEREBRAL DISORDER [None]
  - MATERNAL DRUGS AFFECTING FOETUS [None]
  - PREMATURE BABY [None]
  - INFANTILE APNOEIC ATTACK [None]
  - VENTRICULAR SEPTAL DEFECT [None]
  - RETINOPATHY OF PREMATURITY [None]
  - NEPHROCALCINOSIS [None]
  - NEONATAL HYPOTENSION [None]
